FAERS Safety Report 24074272 (Version 1)
Quarter: 2024Q3

REPORT INFORMATION
  Report Type: Spontaneous
  Country: FR (occurrence: None)
  Receive Date: 20240710
  Receipt Date: 20240710
  Transmission Date: 20241017
  Serious: Yes (Death, Other)
  Sender: ASTRAZENECA
  Company Number: 2024A157100

PATIENT
  Age: 61 Year
  Sex: Male

DRUGS (1)
  1. DURVALUMAB [Suspect]
     Active Substance: DURVALUMAB
     Indication: Non-small cell lung cancer

REACTIONS (8)
  - Metastases to central nervous system [Fatal]
  - Metastases to adrenals [Fatal]
  - Asthenia [Unknown]
  - Oesophagitis [Unknown]
  - Neuropathy peripheral [Unknown]
  - Epithelitis [Unknown]
  - Off label use [Unknown]
  - Alopecia [Unknown]
